FAERS Safety Report 8907726 (Version 1)
Quarter: 2012Q4

REPORT INFORMATION
  Report Type: 
  Country: US (occurrence: US)
  Receive Date: 20121113
  Receipt Date: 20121113
  Transmission Date: 20130627
  Serious: Yes (Other)
  Sender: FDA-Public Use
  Company Number: CHPA2012US023144

PATIENT
  Sex: Female
  Weight: 45 kg

DRUGS (6)
  1. EXCEDRIN UNKNOWN [Suspect]
     Indication: HEADACHE
     Dosage: Unk, Unk
     Dates: start: 200908, end: 201004
  2. ALEVE [Suspect]
     Indication: HEADACHE
     Dosage: Unk, Unk
     Dates: start: 200908, end: 201004
  3. REBIF [Suspect]
     Indication: MULTIPLE SCLEROSIS
     Dosage: 22 ug, 3 IN ONE WEEK
     Route: 058
     Dates: start: 20090805, end: 201004
  4. ZETIA [Concomitant]
     Indication: BLOOD CHOLESTEROL INCREASED
     Dosage: Unk, Unk
  5. SYNTHYROID [Concomitant]
     Indication: HYPOTHYROIDISM
     Dosage: Unk, Unk
  6. PREMARIN [Concomitant]
     Indication: HYSTERECTOMY
     Dosage: Unk, Unk

REACTIONS (2)
  - Gastric ulcer haemorrhage [Recovered/Resolved]
  - Anaemia [Recovered/Resolved]
